FAERS Safety Report 21534090 (Version 1)
Quarter: 2022Q4

REPORT INFORMATION
  Report Type: Spontaneous
  Country: US (occurrence: US)
  Receive Date: 20221101
  Receipt Date: 20221101
  Transmission Date: 20230112
  Serious: No
  Sender: FDA-Public Use
  Company Number: US-PARATEK PHARMACEUTICALS, INC.-2021PTK00229

PATIENT
  Age: 46 Year
  Sex: Female
  Weight: 72.562 kg

DRUGS (4)
  1. NUZYRA [Suspect]
     Active Substance: OMADACYCLINE
     Indication: Cellulitis
     Dosage: 450 MG, 1X/DAY
     Route: 048
     Dates: start: 20211110, end: 20211111
  2. XANAX [Concomitant]
     Active Substance: ALPRAZOLAM
  3. ESTRADIOL [Concomitant]
     Active Substance: ESTRADIOL
  4. METOPROLOL [Concomitant]
     Active Substance: METOPROLOL

REACTIONS (5)
  - Transient ischaemic attack [Recovered/Resolved]
  - Photopsia [Recovered/Resolved]
  - Visual field defect [Recovered/Resolved]
  - Migraine [Recovered/Resolved]
  - Dizziness [Recovered/Resolved]

NARRATIVE: CASE EVENT DATE: 20211101
